FAERS Safety Report 8349217-4 (Version None)
Quarter: 2012Q2

REPORT INFORMATION
  Report Type: 
  Country: None (occurrence: None)
  Receive Date: 20120510
  Receipt Date: 20120502
  Transmission Date: 20120825
  Serious: No
  Sender: FDA-Public Use
  Company Number: PHHY2012NO024562

PATIENT
  Sex: Male

DRUGS (2)
  1. GLEEVEC [Suspect]
     Indication: CHRONIC MYELOID LEUKAEMIA
     Dosage: 400 MG, DAILY
     Dates: start: 20030101
  2. GLEEVEC [Suspect]
     Dosage: 600 MG, DAILY

REACTIONS (2)
  - ORAL MUCOSAL DISCOLOURATION [None]
  - CONTUSION [None]
